FAERS Safety Report 14873023 (Version 2)
Quarter: 2018Q2

REPORT INFORMATION
  Report Type: Spontaneous
  Country: US (occurrence: US)
  Receive Date: 20180510
  Receipt Date: 20180615
  Transmission Date: 20180711
  Serious: No
  Sender: FDA-Public Use
  Company Number: US-ASTRAZENECA-2018SE47763

PATIENT
  Age: 60 Year
  Sex: Female

DRUGS (2)
  1. SYMBICORT [Suspect]
     Active Substance: BUDESONIDE\FORMOTEROL FUMARATE DIHYDRATE
     Indication: WHEEZING
     Dosage: 160\4.5 MCG, 2 INHALES A DAY, BUT NOT EVERY DAY ONLY WHEN SHE FELT SHE NEEDED IT AS REQUIRED
     Route: 055
     Dates: start: 2018
  2. SYMBICORT [Suspect]
     Active Substance: BUDESONIDE\FORMOTEROL FUMARATE DIHYDRATE
     Indication: WHEEZING
     Dosage: 160\4.5 MCG, 2 PUFFS BID, SOMETIMES TID, IN THE MORNING, BEFORE BED, AND IF SHE WAKES UP IN THE M...
     Route: 055

REACTIONS (12)
  - Breathing-related sleep disorder [Not Recovered/Not Resolved]
  - Oropharyngeal pain [Not Recovered/Not Resolved]
  - Drug dose omission [Not Recovered/Not Resolved]
  - Product use issue [Unknown]
  - Intercepted medication error [Unknown]
  - Dyspnoea [Not Recovered/Not Resolved]
  - Wheezing [Not Recovered/Not Resolved]
  - Device issue [Not Recovered/Not Resolved]
  - Circumstance or information capable of leading to medication error [Not Recovered/Not Resolved]
  - Off label use [Unknown]
  - Wrong technique in device usage process [Unknown]
  - Intentional product misuse [Unknown]

NARRATIVE: CASE EVENT DATE: 2018
